FAERS Safety Report 21728164 (Version 1)
Quarter: 2022Q4

REPORT INFORMATION
  Report Type: Spontaneous
  Country: US (occurrence: US)
  Receive Date: 20221214
  Receipt Date: 20221214
  Transmission Date: 20230113
  Serious: Yes (Hospitalization)
  Sender: FDA-Public Use
  Company Number: US-Calliditas-2022CAL00607

PATIENT
  Age: 33 Year
  Sex: Male

DRUGS (1)
  1. TARPEYO [Suspect]
     Active Substance: BUDESONIDE
     Indication: Haematuria
     Dosage: 4 MG (4 MG CAPSULE) ONCE DAILY
     Route: 048
     Dates: start: 20220706

REACTIONS (3)
  - Hypertension [Unknown]
  - Pain [Unknown]
  - Prescribed underdose [Unknown]
